FAERS Safety Report 14067417 (Version 2)
Quarter: 2017Q4

REPORT INFORMATION
  Report Type: Report from Study
  Country: US (occurrence: US)
  Receive Date: 20171010
  Receipt Date: 20171020
  Transmission Date: 20180321
  Serious: Yes (Death, Life-Threatening, Hospitalization, Other)
  Sender: FDA-Public Use
  Company Number: US-TAKEDA-2017TUS020525

PATIENT
  Age: 68 Year
  Sex: Male
  Weight: 86.1 kg

DRUGS (1)
  1. VEDOLIZUMAB [Suspect]
     Active Substance: VEDOLIZUMAB
     Indication: GRAFT VERSUS HOST DISEASE
     Dosage: 600 MG, UNK
     Route: 042
     Dates: start: 20170915

REACTIONS (3)
  - Upper gastrointestinal haemorrhage [Fatal]
  - Graft versus host disease [Fatal]
  - Disseminated intravascular coagulation [Fatal]

NARRATIVE: CASE EVENT DATE: 20170911
